FAERS Safety Report 6780307-3 (Version None)
Quarter: 2010Q2

REPORT INFORMATION
  Report Type: 
  Country: None (occurrence: None)
  Receive Date: 20100618
  Receipt Date: 20100423
  Transmission Date: 20101027
  Serious: Yes (Other)
  Sender: FDA-Public Use
  Company Number: GR-ABBOTT-10P-066-0650425-00

PATIENT
  Sex: Female

DRUGS (7)
  1. HUMIRA [Suspect]
     Indication: RHEUMATOID ARTHRITIS
     Route: 058
     Dates: start: 20050218, end: 20070515
  2. LEXOTANIL [Concomitant]
     Indication: DEPRESSION
     Route: 048
     Dates: start: 19990701
  3. RISPERDAL [Concomitant]
     Indication: DEPRESSION
     Route: 048
     Dates: start: 19990701, end: 20030515
  4. RISPERDAL [Concomitant]
     Route: 048
     Dates: start: 20030515
  5. VERBORIL [Concomitant]
     Indication: RHEUMATOID ARTHRITIS
     Route: 048
     Dates: start: 20010701
  6. CALCIORAL [Concomitant]
     Indication: OSTEOPOROSIS
     Route: 048
     Dates: start: 20021115
  7. EVISTA [Concomitant]
     Indication: OSTEOPOROSIS
     Dates: start: 20021115

REACTIONS (1)
  - PULMONARY HYPERTENSION [None]
